FAERS Safety Report 13016701 (Version 1)
Quarter: 2016Q4

REPORT INFORMATION
  Report Type: Spontaneous
  Country: US (occurrence: US)
  Receive Date: 20161212
  Receipt Date: 20161212
  Transmission Date: 20170207
  Serious: No
  Sender: FDA-Public Use
  Company Number: US-BAYER-2016-233864

PATIENT
  Age: 59 Year
  Sex: Male
  Weight: 88.44 kg

DRUGS (1)
  1. MIRALAX [Suspect]
     Active Substance: POLYETHYLENE GLYCOL 3350
     Indication: GASTROINTESTINAL DISORDER
     Dosage: 1 DOSE ONCE ONLY
     Dates: start: 20161205, end: 20161205

REACTIONS (2)
  - Frequent bowel movements [Not Recovered/Not Resolved]
  - Bowel movement irregularity [Recovered/Resolved]

NARRATIVE: CASE EVENT DATE: 20161207
